FAERS Safety Report 9283992 (Version 2)
Quarter: 2013Q2

REPORT INFORMATION
  Report Type: Spontaneous
  Country: US (occurrence: US)
  Receive Date: 20130510
  Receipt Date: 20130530
  Transmission Date: 20140414
  Serious: Yes (Other)
  Sender: FDA-Public Use
  Company Number: US-JNJFOC-20130503522

PATIENT
  Age: 54 Year
  Sex: Female

DRUGS (5)
  1. INFLIXIMAB [Suspect]
     Indication: PSORIASIS
     Dosage: 5 MG/KG- 4 DOSES AT 0, 2, 6 AND 8 WEEK
     Route: 042
  2. INFLIXIMAB [Suspect]
     Indication: PSORIATIC ARTHROPATHY
     Dosage: 5 MG/KG- 4 DOSES AT 0, 2, 6 AND 8 WEEK
     Route: 042
  3. NAPROXEN [Concomitant]
     Route: 065
  4. CYCLOBENZAPRINE [Concomitant]
     Route: 065
  5. ACETAMINOPHEN WITH HYDROCODONE [Concomitant]
     Route: 065

REACTIONS (1)
  - Drug-induced liver injury [Recovered/Resolved]
